FAERS Safety Report 7164778-9 (Version None)
Quarter: 2010Q4

REPORT INFORMATION
  Report Type: 
  Country: None (occurrence: None)
  Receive Date: 20101215
  Receipt Date: 20101207
  Transmission Date: 20110411
  Serious: Yes (Hospitalization)
  Sender: FDA-Public Use
  Company Number: US-US-EMD SERONO, INC.-7001987

PATIENT
  Sex: Female

DRUGS (3)
  1. REBIF [Suspect]
     Indication: MULTIPLE SCLEROSIS
     Route: 058
     Dates: start: 20091206
  2. BYETTA [Concomitant]
     Indication: DIABETES MELLITUS
  3. UNSPECIFIED DIABETIC MEDICATION [Concomitant]
     Indication: DIABETES MELLITUS
     Route: 048

REACTIONS (9)
  - CONSTIPATION [None]
  - FALLOPIAN TUBE CANCER [None]
  - FLUID RETENTION [None]
  - MENSTRUAL DISORDER [None]
  - MULTIPLE SCLEROSIS RELAPSE [None]
  - OVARIAN NEOPLASM [None]
  - POST PROCEDURAL INFECTION [None]
  - STRESS [None]
  - UTERINE CANCER [None]
